FAERS Safety Report 21047787 (Version 1)
Quarter: 2022Q3

REPORT INFORMATION
  Report Type: Spontaneous
  Country: US (occurrence: US)
  Receive Date: 20220706
  Receipt Date: 20220706
  Transmission Date: 20221027
  Serious: Yes (Hospitalization, Other)
  Sender: FDA-Public Use
  Company Number: US-GSKCCFUS-Case-01422446_AE-81764

PATIENT

DRUGS (1)
  1. BENLYSTA [Suspect]
     Active Substance: BELIMUMAB
     Indication: Systemic lupus erythematosus
     Dosage: UNK UNK, Z (MONTHLY)
     Route: 042
     Dates: start: 202111

REACTIONS (10)
  - Cerebrovascular accident [Unknown]
  - Deafness [Unknown]
  - Blindness [Unknown]
  - Gait inability [Unknown]
  - Amnesia [Unknown]
  - Disturbance in attention [Unknown]
  - Balance disorder [Unknown]
  - Dysphonia [Unknown]
  - Dry eye [Unknown]
  - Condition aggravated [Unknown]
